FAERS Safety Report 12623308 (Version 1)
Quarter: 2016Q3

REPORT INFORMATION
  Report Type: Spontaneous
  Country: US (occurrence: US)
  Receive Date: 20160804
  Receipt Date: 20160804
  Transmission Date: 20161109
  Serious: Yes (Hospitalization, Disabling)
  Sender: FDA-Public Use
  Company Number: US-SA-2016SA137793

PATIENT
  Age: 82 Year
  Sex: Female

DRUGS (2)
  1. LANTUS SOLOSTAR [Suspect]
     Active Substance: INSULIN GLARGINE
     Indication: TYPE 2 DIABETES MELLITUS
     Dosage: DOSE:38 UNIT(S)
     Route: 065
  2. SOLOSTAR [Concomitant]
     Active Substance: DEVICE
     Indication: TYPE 2 DIABETES MELLITUS

REACTIONS (9)
  - Macular degeneration [Unknown]
  - Nephrolithiasis [Unknown]
  - Visual impairment [Unknown]
  - Urethral obstruction [Unknown]
  - Blood glucose abnormal [Unknown]
  - Condition aggravated [Unknown]
  - Hydronephrosis [Unknown]
  - Sepsis [Unknown]
  - Septic shock [Unknown]
